FAERS Safety Report 7117448-7 (Version None)
Quarter: 2010Q4

REPORT INFORMATION
  Report Type: 
  Country: None (occurrence: None)
  Receive Date: 20101122
  Receipt Date: 20101115
  Transmission Date: 20110411
  Serious: Yes (Other)
  Sender: FDA-Public Use
  Company Number: US-SANOFI-AVENTIS-2010SA070339

PATIENT
  Age: 74 Year
  Sex: Female

DRUGS (3)
  1. APIDRA [Suspect]
     Dosage: VIA PUMP 4-5 YEARS AGO
     Route: 058
  2. LANTUS [Suspect]
     Route: 058
  3. SOLOSTAR [Suspect]

REACTIONS (3)
  - BLOOD GLUCOSE INCREASED [None]
  - GLYCOSYLATED HAEMOGLOBIN INCREASED [None]
  - LUNG NEOPLASM MALIGNANT [None]
